FAERS Safety Report 20932781 (Version 1)
Quarter: 2022Q2

REPORT INFORMATION
  Report Type: Spontaneous
  Country: US (occurrence: None)
  Receive Date: 20220607
  Receipt Date: 20220607
  Transmission Date: 20220721
  Serious: Yes (Hospitalization)
  Sender: FDA-Public Use
  Company Number: None

PATIENT
  Sex: Female

DRUGS (6)
  1. CAPECITABINE [Suspect]
     Active Substance: CAPECITABINE
  2. CLOBETASOL SPR 0.05% [Concomitant]
  3. EVEROLIMUS [Concomitant]
     Active Substance: EVEROLIMUS
  4. VERZENIO [Concomitant]
  5. VERZENIO [Concomitant]
     Active Substance: ABEMACICLIB
  6. VERZENIO [Concomitant]
     Active Substance: ABEMACICLIB

REACTIONS (3)
  - Road traffic accident [None]
  - Somnolence [None]
  - Diarrhoea [None]
